FAERS Safety Report 15959587 (Version 1)
Quarter: 2019Q1

REPORT INFORMATION
  Report Type: Spontaneous
  Country: JP (occurrence: JP)
  Receive Date: 20190214
  Receipt Date: 20190214
  Transmission Date: 20190417
  Serious: Yes (Death)
  Sender: FDA-Public Use
  Company Number: JP-ROCHE-2263967

PATIENT
  Age: 75 Year
  Sex: Male

DRUGS (4)
  1. XOFLUZA [Suspect]
     Active Substance: BALOXAVIR MARBOXIL
     Indication: INFLUENZA
     Route: 048
     Dates: start: 20190115, end: 20190115
  2. AMLODIPIN [Concomitant]
     Active Substance: AMLODIPINE BESYLATE
     Indication: HYPERTENSION
     Dosage: 25 MG/DAY
     Route: 048
  3. LANTUS [Concomitant]
     Active Substance: INSULIN GLARGINE
     Indication: DIABETES MELLITUS
  4. FLUVASTATIN [Concomitant]
     Active Substance: FLUVASTATIN SODIUM
     Dosage: 20 MG/DAY
     Route: 048

REACTIONS (3)
  - Aortic dissection [Fatal]
  - Cardiac tamponade [Fatal]
  - Pneumonia [Fatal]

NARRATIVE: CASE EVENT DATE: 20190115
